FAERS Safety Report 24815492 (Version 1)
Quarter: 2025Q1

REPORT INFORMATION
  Report Type: Spontaneous
  Country: US (occurrence: US)
  Receive Date: 20250107
  Receipt Date: 20250107
  Transmission Date: 20250408
  Serious: No
  Sender: MERCK
  Company Number: US-009507513-2412USA008036

PATIENT
  Sex: Female
  Weight: 80.272 kg

DRUGS (8)
  1. KEYTRUDA [Suspect]
     Active Substance: PEMBROLIZUMAB
     Indication: Endometrial cancer
     Dates: end: 202409
  2. KEYTRUDA [Suspect]
     Active Substance: PEMBROLIZUMAB
     Dates: start: 20241121
  3. LENVATINIB MESYLATE [Interacting]
     Active Substance: LENVATINIB MESYLATE
     Indication: Endometrial cancer
     Route: 048
     Dates: start: 202404, end: 202409
  4. LENVATINIB MESYLATE [Interacting]
     Active Substance: LENVATINIB MESYLATE
     Dosage: 8 MILLIGRAM, DAILY
     Route: 048
     Dates: start: 20021122
  5. AMLODIPINE [Concomitant]
     Active Substance: AMLODIPINE BESYLATE
  6. HYDROCHLOROTHIAZIDE\LISINOPRIL [Concomitant]
     Active Substance: HYDROCHLOROTHIAZIDE\LISINOPRIL
  7. LOPERAMIDE [Concomitant]
     Active Substance: LOPERAMIDE
  8. POTASSIUM [Concomitant]
     Active Substance: POTASSIUM

REACTIONS (2)
  - Laboratory test abnormal [Not Recovered/Not Resolved]
  - Incorrect dose administered [Unknown]

NARRATIVE: CASE EVENT DATE: 20240901
